FAERS Safety Report 10128705 (Version 2)
Quarter: 2014Q2

REPORT INFORMATION
  Report Type: Spontaneous
  Country: JP (occurrence: JP)
  Receive Date: 20140428
  Receipt Date: 20140609
  Transmission Date: 20141212
  Serious: Yes (Hospitalization, Other)
  Sender: FDA-Public Use
  Company Number: JP-JNJFOC-20140416318

PATIENT
  Age: 79 Year
  Sex: Female
  Weight: 57 kg

DRUGS (11)
  1. XARELTO [Suspect]
     Indication: PROPHYLAXIS
     Route: 048
     Dates: start: 2012, end: 20140415
  2. METFORMIN HYDROCHLORIDE [Concomitant]
     Route: 048
  3. HYDROCORTISONE [Concomitant]
     Route: 048
  4. FLUITRAN [Concomitant]
     Route: 048
  5. ARTIST [Concomitant]
     Route: 048
  6. AZILSARTAN [Concomitant]
     Route: 048
  7. PLAVIX [Concomitant]
     Indication: CARDIAC DISORDER
     Route: 048
  8. LIVALO [Concomitant]
     Route: 048
  9. BENIDIPINE HYDROCHLORIDE [Concomitant]
     Route: 048
  10. VILDAGLIPTIN [Concomitant]
     Route: 048
  11. URINORM [Concomitant]
     Route: 048

REACTIONS (1)
  - Embolic stroke [Recovering/Resolving]
